FAERS Safety Report 6766549-1 (Version None)
Quarter: 2010Q2

REPORT INFORMATION
  Report Type: 
  Country: None (occurrence: None)
  Receive Date: 20100611
  Receipt Date: 20100603
  Transmission Date: 20101027
  Serious: Yes (Other)
  Sender: FDA-Public Use
  Company Number: US-PURDUE-USA-2010-0043565

PATIENT
  Age: 59 Year
  Sex: Female
  Weight: 77.098 kg

DRUGS (6)
  1. BETADINE [Suspect]
     Indication: INTRAOPERATIVE CARE
  2. ADVAIR DISKUS 100/50 [Concomitant]
  3. SPIRIVA [Concomitant]
  4. FLONASE [Concomitant]
  5. ALBUTEROL [Concomitant]
  6. METHOTREXATE [Concomitant]

REACTIONS (19)
  - BURN OESOPHAGEAL [None]
  - CANDIDIASIS [None]
  - CONTUSION [None]
  - DYSGEUSIA [None]
  - DYSPNOEA [None]
  - GINGIVAL RECESSION [None]
  - HERPES ZOSTER [None]
  - LUNG INFECTION [None]
  - NASAL DISCOMFORT [None]
  - ORAL DISCOMFORT [None]
  - OROPHARYNGEAL BLISTERING [None]
  - PRODUCTIVE COUGH [None]
  - PRURITUS [None]
  - RHINORRHOEA [None]
  - SKIN ATROPHY [None]
  - SPUTUM ABNORMAL [None]
  - THROAT IRRITATION [None]
  - TOOTH DISCOLOURATION [None]
  - TOOTH DISORDER [None]
